FAERS Safety Report 9381008 (Version 1)
Quarter: 2013Q3

REPORT INFORMATION
  Report Type: Spontaneous
  Country: US (occurrence: US)
  Receive Date: 20130703
  Receipt Date: 20130703
  Transmission Date: 20140515
  Serious: Yes (Hospitalization)
  Sender: FDA-Public Use
  Company Number: US-BRISTOL-MYERS SQUIBB COMPANY-19056308

PATIENT
  Age: 80 Year
  Sex: Male

DRUGS (2)
  1. COUMADIN [Suspect]
     Dates: start: 2005, end: 201306
  2. BABY ASPIRIN [Concomitant]

REACTIONS (5)
  - Drug ineffective [Unknown]
  - Peripheral embolism [Unknown]
  - Skin lesion [Unknown]
  - Genital lesion [Unknown]
  - Renal disorder [Unknown]
